FAERS Safety Report 25140380 (Version 1)
Quarter: 2025Q1

REPORT INFORMATION
  Report Type: Spontaneous
  Country: US (occurrence: None)
  Receive Date: 20250328
  Receipt Date: 20250328
  Transmission Date: 20250409
  Serious: Yes (Life-Threatening, Disabling, Other)
  Sender: FDA-CTU
  Company Number: None

PATIENT
  Age: 23 Year

DRUGS (2)
  1. DESVENLAFAXINE [Suspect]
     Active Substance: DESVENLAFAXINE
     Indication: Depression
     Route: 048
     Dates: start: 20190118, end: 20230515
  2. Pristiq 100mg [Concomitant]

REACTIONS (15)
  - Drug withdrawal syndrome [None]
  - Ophthalmic migraine [None]
  - Anxiety [None]
  - Panic attack [None]
  - Memory impairment [None]
  - Cognitive disorder [None]
  - Brain fog [None]
  - Fatigue [None]
  - Myalgia [None]
  - Dizziness [None]
  - Asthenia [None]
  - Electric shock sensation [None]
  - Emotional distress [None]
  - Suicidal ideation [None]
  - Product physical issue [None]

NARRATIVE: CASE EVENT DATE: 20230515
